FAERS Safety Report 5732136-7 (Version None)
Quarter: 2008Q2

REPORT INFORMATION
  Report Type: 
  Country: None (occurrence: None)
  Receive Date: 20080508
  Receipt Date: 20080428
  Transmission Date: 20081010
  Serious: Yes (Disabling)
  Sender: FDA-Public Use
  Company Number: DE-PFIZER INC-2008037084

PATIENT
  Sex: Female

DRUGS (12)
  1. LONOLOX [Suspect]
     Indication: HYPERTENSION
     Dosage: DAILY DOSE:10MG
     Route: 048
  2. DIGIMERCK [Concomitant]
     Dosage: DAILY DOSE:.1MG-FREQ:QD
     Route: 065
  3. AMLODIN [Concomitant]
     Dosage: DAILY DOSE:5MG
     Route: 048
  4. LISINOPRIL [Concomitant]
     Route: 048
  5. IRBESARTAN [Concomitant]
     Route: 048
  6. METOPROLOL SUCCINATE [Concomitant]
     Route: 048
  7. DREISAVIT [Concomitant]
     Dosage: TEXT:1 DF
     Route: 048
  8. DEDROGYL [Concomitant]
     Dosage: DAILY DOSE:10DROP
     Route: 048
  9. CALCIUM ACETATE [Concomitant]
     Route: 065
  10. RENAGEL [Concomitant]
     Route: 048
  11. MARCUMAR [Concomitant]
     Route: 048
  12. EPOETIN [Concomitant]
     Route: 042

REACTIONS (1)
  - COLOUR BLINDNESS [None]
